FAERS Safety Report 24215293 (Version 1)
Quarter: 2024Q3

REPORT INFORMATION
  Report Type: Spontaneous
  Country: IT (occurrence: IT)
  Receive Date: 20240816
  Receipt Date: 20240816
  Transmission Date: 20241016
  Serious: Yes (Hospitalization)
  Sender: STRIDES
  Company Number: IT-STRIDES ARCOLAB LIMITED-2024SP010207

PATIENT
  Age: 71 Year
  Sex: Male

DRUGS (12)
  1. LAMIVUDINE [Suspect]
     Active Substance: LAMIVUDINE
     Indication: Antiviral prophylaxis
     Dosage: UNK
     Route: 065
     Dates: end: 202306
  2. CYCLOPHOSPHAMIDE [Concomitant]
     Active Substance: CYCLOPHOSPHAMIDE
     Indication: Gastric cancer
     Dosage: UNK, CYCLICAL (RECEIVED 4 CYCLES)
     Route: 065
     Dates: start: 202107, end: 202111
  3. CYCLOPHOSPHAMIDE [Concomitant]
     Active Substance: CYCLOPHOSPHAMIDE
     Indication: Extranodal marginal zone B-cell lymphoma (MALT type)
  4. DOXORUBICIN [Concomitant]
     Active Substance: DOXORUBICIN
     Indication: Gastric cancer
     Dosage: UNK, CYCLICAL (RECEIVED 4 CYCLES)
     Route: 065
     Dates: end: 202111
  5. DOXORUBICIN [Concomitant]
     Active Substance: DOXORUBICIN
     Indication: Extranodal marginal zone B-cell lymphoma (MALT type)
  6. RITUXIMAB [Concomitant]
     Active Substance: RITUXIMAB
     Indication: Gastric cancer
     Dosage: UNK, CYCLICAL (RECEIVED 4 CYCLES)
     Route: 065
     Dates: start: 202107, end: 202111
  7. RITUXIMAB [Concomitant]
     Active Substance: RITUXIMAB
     Indication: Extranodal marginal zone B-cell lymphoma (MALT type)
  8. VINCRISTINE [Concomitant]
     Active Substance: VINCRISTINE
     Indication: Gastric cancer
     Dosage: UNK, CYCLICAL (RECEIVED 4 CYCLES)
     Route: 065
     Dates: start: 202107, end: 202111
  9. VINCRISTINE [Concomitant]
     Active Substance: VINCRISTINE
     Indication: Extranodal marginal zone B-cell lymphoma (MALT type)
  10. PREDNISONE [Concomitant]
     Active Substance: PREDNISONE
     Indication: Gastric cancer
     Dosage: UNK, CYCLICAL (RECEIVED 4 CYCLES FOR GASTIC MALTOMA)
     Route: 065
     Dates: start: 202107, end: 202111
  11. PREDNISONE [Concomitant]
     Active Substance: PREDNISONE
     Indication: Extranodal marginal zone B-cell lymphoma (MALT type)
     Dosage: UNK (RECEIVED FOR SARSCOV2 INFECTION)
     Route: 065
  12. PREDNISONE [Concomitant]
     Active Substance: PREDNISONE
     Indication: COVID-19

REACTIONS (1)
  - Rebound effect [Recovered/Resolved]
